FAERS Safety Report 5405979-7 (Version None)
Quarter: 2007Q3

REPORT INFORMATION
  Report Type: 
  Country: None (occurrence: None)
  Receive Date: 20070806
  Receipt Date: 20070731
  Transmission Date: 20080115
  Serious: Yes (Congenital Anomaly, Other)
  Sender: FDA-Public Use
  Company Number: US-BRISTOL-MYERS SQUIBB COMPANY-13837919

PATIENT
  Sex: Female

DRUGS (3)
  1. SUSTIVA [Suspect]
     Route: 048
     Dates: end: 20070201
  2. TRUVADA [Suspect]
     Route: 048
  3. VIRAMUNE [Suspect]
     Route: 048
     Dates: start: 20070201

REACTIONS (8)
  - BREECH PRESENTATION [None]
  - DANDY-WALKER SYNDROME [None]
  - FOETAL GROWTH RETARDATION [None]
  - FOETAL MALFORMATION [None]
  - OLIGOHYDRAMNIOS [None]
  - PREGNANCY [None]
  - STILLBIRTH [None]
  - UMBILICAL CORD ABNORMALITY [None]
